FAERS Safety Report 8365005-7 (Version None)
Quarter: 2012Q2

REPORT INFORMATION
  Report Type: 
  Country: None (occurrence: None)
  Receive Date: 20120516
  Receipt Date: 20120509
  Transmission Date: 20120825
  Serious: Yes (Hospitalization)
  Sender: FDA-Public Use
  Company Number: BR-GLAXOSMITHKLINE-A0977600A

PATIENT

DRUGS (5)
  1. FLUTICASONE PROPIONATE [Suspect]
     Indication: BRONCHOSPASM
     Dosage: 1PUFF TWICE PER DAY
     Route: 055
     Dates: start: 20120424
  2. CLARITHROMYCIN [Concomitant]
     Dates: start: 20120423, end: 20120507
  3. SOLU-MEDROL [Concomitant]
     Dosage: 40ML SIX TIMES PER DAY
     Dates: start: 20120423, end: 20120429
  4. RANITIDINE HCL [Concomitant]
     Dates: start: 20120422, end: 20120429
  5. ALBUTEROL [Concomitant]
     Dates: start: 20120423, end: 20120429

REACTIONS (2)
  - HYPERAEMIA [None]
  - ERYTHEMA [None]
